FAERS Safety Report 22913054 (Version 2)
Quarter: 2024Q4

REPORT INFORMATION
  Report Type: Report from Study
  Country: US (occurrence: US)
  Receive Date: 20230906
  Receipt Date: 20241115
  Transmission Date: 20250115
  Serious: Yes (Other)
  Sender: GENMAB
  Company Number: US-GENMAB-2023-01542

PATIENT
  Sex: Female

DRUGS (1)
  1. EPKINLY [Suspect]
     Active Substance: EPCORITAMAB-BYSP
     Indication: Diffuse large B-cell lymphoma
     Dosage: 48/0.8 MG/ML, ONCE WEEKLY
     Route: 058
     Dates: start: 20230608, end: 20230829

REACTIONS (2)
  - Diffuse large B-cell lymphoma [Unknown]
  - Product dose omission issue [Unknown]
